FAERS Safety Report 5473580-5 (Version None)
Quarter: 2007Q4

REPORT INFORMATION
  Report Type: 
  Country: None (occurrence: None)
  Receive Date: 20071001
  Receipt Date: 20070723
  Transmission Date: 20080405
  Serious: No
  Sender: FDA-Public Use
  Company Number: US-ASTRAZENECA-2007UW08231

PATIENT
  Age: 75 Year
  Sex: Female

DRUGS (10)
  1. ARIMIDEX [Suspect]
     Indication: BREAST CANCER
     Route: 048
  2. PREVACID [Concomitant]
     Indication: GASTROOESOPHAGEAL REFLUX DISEASE
  3. SHELAXIN [Concomitant]
     Indication: MUSCLE SPASMS
  4. IMITREX [Concomitant]
     Indication: MIGRAINE
  5. CRESTOR [Concomitant]
     Indication: BLOOD CHOLESTEROL INCREASED
     Route: 048
  6. ZETIA [Concomitant]
     Indication: BLOOD CHOLESTEROL INCREASED
  7. OMACOR [Concomitant]
     Indication: CARDIAC DISORDER
  8. TOPROL-XL [Concomitant]
     Indication: CARDIAC DISORDER
     Route: 048
  9. COUMADIN [Concomitant]
     Indication: CARDIAC DISORDER
  10. NITROLINGUAL PUMPSPRAY [Concomitant]

REACTIONS (1)
  - CARDIAC DISORDER [None]
